FAERS Safety Report 13625831 (Version 1)
Quarter: 2017Q2

REPORT INFORMATION
  Report Type: Spontaneous
  Country: JP (occurrence: JP)
  Receive Date: 20170607
  Receipt Date: 20170607
  Transmission Date: 20170830
  Serious: Yes (Other)
  Sender: FDA-Public Use
  Company Number: JP-PFIZER INC-2017245019

PATIENT
  Age: 74 Year
  Sex: Male
  Weight: 60 kg

DRUGS (3)
  1. LYRICA [Suspect]
     Active Substance: PREGABALIN
     Dosage: 250 MG, DAILY
     Route: 048
     Dates: start: 20170513
  2. LYRICA [Suspect]
     Active Substance: PREGABALIN
     Dosage: 100 MG, DAILY
     Route: 048
     Dates: start: 20170314
  3. LYRICA [Suspect]
     Active Substance: PREGABALIN
     Dosage: DECREASED GRADUALLY WITHIN 2 WEEKS
     Route: 048
     Dates: start: 201705

REACTIONS (4)
  - Pulmonary congestion [Unknown]
  - Weight increased [Recovering/Resolving]
  - Pleural effusion [Unknown]
  - Pulmonary oedema [Unknown]

NARRATIVE: CASE EVENT DATE: 20170314
